FAERS Safety Report 7280588-6 (Version None)
Quarter: 2011Q1

REPORT INFORMATION
  Report Type: 
  Country: None (occurrence: None)
  Receive Date: 20110208
  Receipt Date: 20101130
  Transmission Date: 20110831
  Serious: Yes (Hospitalization, Other)
  Sender: FDA-Public Use
  Company Number: US-BAYER-201029591NA

PATIENT
  Sex: Female
  Weight: 52.154 kg

DRUGS (8)
  1. OCELLA [Suspect]
     Indication: DYSMENORRHOEA
  2. OCELLA [Suspect]
     Indication: CONTRACEPTION
     Dosage: UNK
     Dates: start: 20090501, end: 20091001
  3. YASMIN [Suspect]
     Indication: DYSMENORRHOEA
     Dosage: UNK
     Dates: end: 20100108
  4. YASMIN [Suspect]
     Indication: CONTRACEPTION
     Dosage: UNK UNK, UNK
     Route: 048
     Dates: start: 20070701, end: 20090401
  5. SPIRONOLACTONE [Concomitant]
     Dosage: 100 MG, UNK
  6. YAZ [Suspect]
     Indication: CONTRACEPTION
     Dosage: UNK
     Dates: start: 20080401, end: 20080401
  7. HYOSCYAMINE [Concomitant]
     Dosage: UNK UNK, PRN
  8. YAZ [Suspect]
     Indication: DYSMENORRHOEA

REACTIONS (5)
  - BILIARY DYSKINESIA [None]
  - CHOLECYSTITIS [None]
  - NAUSEA [None]
  - ABDOMINAL PAIN [None]
  - GASTROINTESTINAL DISORDER [None]
